FAERS Safety Report 9233668 (Version 1)
Quarter: 2013Q2

REPORT INFORMATION
  Report Type: Spontaneous
  Country: US (occurrence: US)
  Receive Date: 20130416
  Receipt Date: 20130416
  Transmission Date: 20140414
  Serious: No
  Sender: FDA-Public Use
  Company Number: US-BANPHARM-20130695

PATIENT
  Age: 70 Year
  Sex: Female
  Weight: 56.7 kg

DRUGS (5)
  1. ALEVE LIQUID GELS 220MG [Suspect]
     Dosage: 1 DF, PRN,
     Route: 048
     Dates: start: 20120308, end: 20120308
  2. DIOVAN [Concomitant]
  3. POTASSIUM [Concomitant]
  4. CENTRUM MULTI VITAMIN [Concomitant]
  5. CALCIUM WITH VITAMIN D [Concomitant]

REACTIONS (1)
  - Rash [Not Recovered/Not Resolved]
